FAERS Safety Report 7168215-X (Version None)
Quarter: 2010Q4

REPORT INFORMATION
  Report Type: 
  Country: None (occurrence: None)
  Receive Date: 20101216
  Receipt Date: 20101130
  Transmission Date: 20110411
  Serious: No
  Sender: FDA-Public Use
  Company Number: US-B.I. PHARMACEUTICALS,INC./RIDGEFIELD-2010-BP-13614BP

PATIENT
  Age: 81 Year
  Sex: Male

DRUGS (13)
  1. PRADAXA [Suspect]
     Indication: ATRIAL FIBRILLATION
     Dosage: 300 MG
     Route: 048
     Dates: start: 20101117
  2. CASODEX [Concomitant]
     Indication: PROSTATE CANCER
  3. MAGNESIUM [Concomitant]
  4. M.V.I. [Concomitant]
  5. LUPRON [Concomitant]
     Indication: NEOPLASM MALIGNANT
  6. PROSTON [Concomitant]
  7. LISINOPRIL [Concomitant]
     Indication: HYPERTENSION
  8. LIPITOR [Concomitant]
     Indication: BLOOD CHOLESTEROL INCREASED
  9. POTASSIUM CHLORIDE [Concomitant]
  10. DARVOCET-N 100 [Concomitant]
     Indication: ARTHRITIS
  11. VIT C [Concomitant]
  12. ASPIRIN [Concomitant]
     Indication: CARDIAC DISORDER
  13. SLEEPING PILL [Concomitant]
     Indication: INSOMNIA

REACTIONS (4)
  - ABDOMINAL DISCOMFORT [None]
  - ASTHENIA [None]
  - NAUSEA [None]
  - SOMNOLENCE [None]
